FAERS Safety Report 5594254-6 (Version None)
Quarter: 2008Q1

REPORT INFORMATION
  Report Type: 
  Country: None (occurrence: None)
  Receive Date: 20080117
  Receipt Date: 20080108
  Transmission Date: 20080703
  Serious: Yes (Hospitalization, Other)
  Sender: FDA-Public Use
  Company Number: JP-BRISTOL-MYERS SQUIBB COMPANY-14040786

PATIENT
  Age: 71 Year
  Sex: Male

DRUGS (5)
  1. GATIFLOXACIN [Suspect]
     Indication: PNEUMONIA
     Route: 048
     Dates: start: 20071231, end: 20080102
  2. GAMOFA [Concomitant]
     Route: 048
     Dates: start: 20071222, end: 20080105
  3. LOXONIN [Concomitant]
     Route: 048
     Dates: start: 20071222, end: 20080105
  4. CIBENOL [Concomitant]
     Route: 048
     Dates: start: 20071222, end: 20080105
  5. SELBEX [Concomitant]
     Route: 048
     Dates: start: 20071222, end: 20080105

REACTIONS (1)
  - HYPOGLYCAEMIA [None]
